FAERS Safety Report 14183496 (Version 3)
Quarter: 2017Q4

REPORT INFORMATION
  Report Type: Spontaneous
  Country: HR (occurrence: HR)
  Receive Date: 20171113
  Receipt Date: 20171220
  Transmission Date: 20180321
  Serious: Yes (Hospitalization)
  Sender: FDA-Public Use
  Company Number: HR-TEVA-824689ROM

PATIENT
  Age: 5 Year
  Sex: Male
  Weight: 20 kg

DRUGS (2)
  1. KLAVOCIN BID SIRUP [Suspect]
     Active Substance: AMOXICILLIN\CLAVULANIC ACID
     Indication: PHARYNGITIS
     Dosage: 5 ML DAILY; LIQUIDS, DRY SUSPENSIONS/SYRUPS/DROPS
     Route: 048
     Dates: start: 20171023, end: 20171024
  2. NEOFEN [Concomitant]
     Indication: BODY TEMPERATURE INCREASED
     Dosage: 125 MILLIGRAM DAILY;
     Route: 054
     Dates: start: 20171019, end: 20171024

REACTIONS (7)
  - Diarrhoea [Recovering/Resolving]
  - Abdominal distension [Unknown]
  - Dyspnoea [Unknown]
  - Flatulence [Unknown]
  - Muscle spasms [Unknown]
  - Abdominal pain upper [Recovering/Resolving]
  - Nausea [Unknown]

NARRATIVE: CASE EVENT DATE: 20171023
